FAERS Safety Report 7065386-0 (Version None)
Quarter: 2010Q4

REPORT INFORMATION
  Report Type: 
  Country: None (occurrence: None)
  Receive Date: 20101027
  Receipt Date: 20101018
  Transmission Date: 20110411
  Serious: Yes (Hospitalization, Other)
  Sender: FDA-Public Use
  Company Number: US-ROCHE-724674

PATIENT
  Sex: Male
  Weight: 69.9 kg

DRUGS (18)
  1. BEVACIZUMAB [Suspect]
     Dosage: LAST DOSE ADMINISTERED:29 SEPTEMBER 2010, DOSE LEVEL: 10 MG/KG, FREQUENCY: DAY 1 AND 15 EVERY 28 DAY
     Route: 042
     Dates: start: 20091209
  2. CARBOPLATIN [Suspect]
     Dosage: LAST DOSE ADMINISTERED:15 SEPTEMBER 2010, DOSE LEVEL: 4 AUC, DAYS 1,8,15 EVERY 28 DAYS
     Route: 042
     Dates: start: 20091209
  3. PACLITAXEL [Suspect]
     Dosage: LAST DOSE ADMINISTERED:29 SEPTEMBER 2010, EVERY 28 DAY
     Route: 042
     Dates: start: 20091209
  4. OPIOID ANALGESICS [Concomitant]
     Indication: HEADACHE
  5. VALIUM [Concomitant]
     Indication: HEADACHE
  6. BISOPROLOL FUMARATE AND HYDROCHLOROTHIAZIDE [Concomitant]
  7. CYCLOBENZAPRINE [Concomitant]
  8. DEXAMETHASONE [Concomitant]
  9. DIVALPROEX SODIUM [Concomitant]
  10. LANSOPRAZOLE [Concomitant]
  11. MAGNESIUM OXIDE [Concomitant]
  12. MORPHINE [Concomitant]
  13. ONDANSETRON [Concomitant]
  14. POTASSIUM CHLORIDE [Concomitant]
  15. SIMVASTATIN [Concomitant]
  16. LIDOCAINE/PRILOCAINE [Concomitant]
  17. METHYLPHENIDATE [Concomitant]
  18. NEOMYCIN/GRAMICIDIN/POLYMYXIN [Concomitant]

REACTIONS (9)
  - CONVULSION [None]
  - DECREASED APPETITE [None]
  - FATIGUE [None]
  - HAEMOGLOBIN [None]
  - HYPOMAGNESAEMIA [None]
  - LYMPHOPENIA [None]
  - SINUSITIS [None]
  - WHITE BLOOD CELL COUNT [None]
  - WHITE BLOOD CELL COUNT DECREASED [None]
